FAERS Safety Report 5076171-3 (Version None)
Quarter: 2006Q3

REPORT INFORMATION
  Report Type: 
  Country: None (occurrence: None)
  Receive Date: 20060807
  Receipt Date: 20060725
  Transmission Date: 20061208
  Serious: Yes (Hospitalization, Other)
  Sender: FDA-Public Use
  Company Number: HQWYE852117APR06

PATIENT
  Age: 48 Year
  Sex: Female

DRUGS (3)
  1. RAPAMUNE [Suspect]
     Indication: PROPHYLAXIS AGAINST TRANSPLANT REJECTION
     Dosage: UNSPECIFIED ORAL
     Route: 048
     Dates: start: 20060404, end: 20060414
  2. CELLCEPT [Suspect]
     Dosage: ORAL
     Route: 048
     Dates: end: 20060412
  3. SIMULECT [Concomitant]

REACTIONS (6)
  - ANAEMIA [None]
  - ARTERITIS [None]
  - HAEMODIALYSIS [None]
  - KIDNEY TRANSPLANT REJECTION [None]
  - PLATELET COUNT DECREASED [None]
  - RENAL INFARCT [None]
